FAERS Safety Report 10196236 (Version 1)
Quarter: 2014Q2

REPORT INFORMATION
  Report Type: Spontaneous
  Country: US (occurrence: None)
  Receive Date: 20140522
  Receipt Date: 20140522
  Transmission Date: 20141212
  Serious: Yes (Other)
  Sender: FDA-Public Use
  Company Number: AUR-APL-2014-05908

PATIENT
  Age: 59 Year
  Sex: Male

DRUGS (2)
  1. OLANZAPINE [Suspect]
     Indication: HICCUPS
     Dosage: 2.5 MG (2.5 MG, 1 IN 1 D), UNKNOWN
  2. BACLOFEN (BACLOFEN) [Concomitant]

REACTIONS (7)
  - Hiccups [None]
  - Vomiting [None]
  - Activities of daily living impaired [None]
  - Extrapyramidal disorder [None]
  - Balance disorder [None]
  - Swollen tongue [None]
  - Dyskinesia [None]
